FAERS Safety Report 7780626-8 (Version None)
Quarter: 2011Q3

REPORT INFORMATION
  Report Type: 
  Country: None (occurrence: None)
  Receive Date: 20110927
  Receipt Date: 20110105
  Transmission Date: 20111222
  Serious: No
  Sender: FDA-Public Use
  Company Number: US-BRISTOL-MYERS SQUIBB COMPANY-15411234

PATIENT
  Age: 66 Year
  Sex: Male

DRUGS (8)
  1. AMIODARONE HCL [Concomitant]
     Dosage: Q AM
  2. MULTI-VITAMIN [Concomitant]
     Dosage: OCCASIONAL
  3. AVALIDE [Suspect]
     Dosage: 1DF:INITIAL DOSE:300/12.5:12AUG10, 300/25:1SEP10 TABLET
     Dates: start: 20100825
  4. WARFARIN SODIUM [Concomitant]
     Dosage: 1DF:2.5 MG ON MON AND FRI AND  5 MG ON OTHER DAYS OF THE WEEK
  5. AVAPRO [Suspect]
  6. ASPIRIN [Concomitant]
     Dosage: Q PM
  7. LIPITOR [Concomitant]
     Dosage: Q PM
  8. CALCIUM SUPPLEMENT [Concomitant]
     Dosage: OCCASIONAL

REACTIONS (1)
  - BLOOD PRESSURE FLUCTUATION [None]
